FAERS Safety Report 5155178-1 (Version None)
Quarter: 2006Q4

REPORT INFORMATION
  Report Type: 
  Country: None (occurrence: None)
  Receive Date: 20061121
  Receipt Date: 20061109
  Transmission Date: 20070319
  Serious: Yes (Hospitalization, Other)
  Sender: FDA-Public Use
  Company Number: US-ELI_LILLY_AND_COMPANY-US200611001959

PATIENT
  Sex: Male

DRUGS (2)
  1. FORTEO [Suspect]
     Indication: OSTEOPOROSIS
     Dosage: 20 UG, UNK
     Dates: start: 20060201, end: 20060401
  2. LOVASTATIN [Concomitant]

REACTIONS (6)
  - BONE NEOPLASM MALIGNANT [None]
  - FALL [None]
  - GAIT DISTURBANCE [None]
  - NEOPLASM [None]
  - PAIN [None]
  - SURGERY [None]
